FAERS Safety Report 13469098 (Version 2)
Quarter: 2017Q2

REPORT INFORMATION
  Report Type: Spontaneous
  Country: US (occurrence: US)
  Receive Date: 20170421
  Receipt Date: 20170509
  Transmission Date: 20170830
  Serious: Yes (Other)
  Sender: FDA-Public Use
  Company Number: US-PFIZER INC-2017166884

PATIENT
  Age: 52 Year
  Sex: Female

DRUGS (25)
  1. ALBUTEROL SULFATE. [Concomitant]
     Active Substance: ALBUTEROL SULFATE
     Dosage: UNK
  2. CLONAZEPAM. [Concomitant]
     Active Substance: CLONAZEPAM
     Dosage: UNK
  3. RELPAX [Concomitant]
     Active Substance: ELETRIPTAN HYDROBROMIDE
     Dosage: UNK
  4. BELSOMRA [Concomitant]
     Active Substance: SUVOREXANT
     Dosage: UNK
  5. VALACYCLOVIR HCL [Concomitant]
     Active Substance: VALACYCLOVIR HYDROCHLORIDE
     Dosage: UNK
  6. NYSTATIN. [Concomitant]
     Active Substance: NYSTATIN
     Dosage: UNK
  7. PRAVASTATIN SODIUM. [Concomitant]
     Active Substance: PRAVASTATIN SODIUM
     Dosage: UNK
  8. MUCINEX [Concomitant]
     Active Substance: GUAIFENESIN
     Dosage: UNK
  9. XELJANZ [Suspect]
     Active Substance: TOFACITINIB CITRATE
     Indication: RHEUMATOID ARTHRITIS
     Dosage: 11 MG, DAILY
     Route: 048
  10. IMITREX [Concomitant]
     Active Substance: SUMATRIPTAN SUCCINATE
     Dosage: UNK
  11. VASCEPA [Concomitant]
     Active Substance: ICOSAPENT ETHYL
     Dosage: UNK
  12. LEVOCETIRIZINE DIHYDROCHLORIDE. [Concomitant]
     Active Substance: LEVOCETIRIZINE DIHYDROCHLORIDE
     Dosage: UNK
  13. MELOXICAM. [Concomitant]
     Active Substance: MELOXICAM
     Dosage: UNK
  14. OMEGA 3 [Concomitant]
     Active Substance: OMEGA-3 FATTY ACIDS
     Dosage: UNK
  15. PROMETHAZINE HCL [Concomitant]
     Active Substance: PROMETHAZINE HYDROCHLORIDE
     Dosage: UNK
  16. TYLENOL PM EXTRA STRENGTH [Concomitant]
     Active Substance: ACETAMINOPHEN\DIPHENHYDRAMINE HYDROCHLORIDE
     Dosage: UNK
  17. BIOTIN [Concomitant]
     Active Substance: BIOTIN
     Dosage: UNK
  18. DICYCLOMINE HCL [Concomitant]
     Active Substance: DICYCLOMINE HYDROCHLORIDE
     Dosage: UNK
  19. BACLOFEN. [Concomitant]
     Active Substance: BACLOFEN
     Dosage: UNK
  20. TRAZODONE HYDROCHLORIDE. [Concomitant]
     Active Substance: TRAZODONE HYDROCHLORIDE
     Dosage: UNK
  21. SCOPOLAMINE HBR [Concomitant]
     Active Substance: SCOPOLAMINE
     Dosage: UNK
  22. AMITIZA [Concomitant]
     Active Substance: LUBIPROSTONE
     Dosage: UNK
  23. TOPIRAMATE. [Concomitant]
     Active Substance: TOPIRAMATE
     Dosage: UNK
  24. FLUTICASONE PROPIONATE. [Concomitant]
     Active Substance: FLUTICASONE PROPIONATE
     Dosage: UNK
  25. LACTULOSE. [Concomitant]
     Active Substance: LACTULOSE
     Dosage: UNK

REACTIONS (5)
  - Condition aggravated [Recovered/Resolved]
  - Ligament sprain [Unknown]
  - Sensitivity to weather change [Unknown]
  - Irritable bowel syndrome [Unknown]
  - Ligament rupture [Unknown]
